FAERS Safety Report 18989539 (Version 1)
Quarter: 2021Q1

REPORT INFORMATION
  Report Type: Spontaneous
  Country: US (occurrence: US)
  Receive Date: 20210310
  Receipt Date: 20210310
  Transmission Date: 20210420
  Serious: Yes (Hospitalization, Other)
  Sender: FDA-Public Use
  Company Number: US-ALKEM LABORATORIES LIMITED-US-ALKEM-2021-00737

PATIENT
  Age: 64 Year
  Sex: Male

DRUGS (5)
  1. PREDNISONE. [Suspect]
     Active Substance: PREDNISONE
     Indication: IMMUNOSUPPRESSANT DRUG THERAPY
     Dosage: 5 MILLIGRAM, QD
     Route: 065
  2. TACROLIMUS. [Suspect]
     Active Substance: TACROLIMUS
     Indication: IMMUNOSUPPRESSANT DRUG THERAPY
     Dosage: .15 MILLIGRAM/KILOGRAM, QD
     Route: 065
  3. ANTITHYMOCYTE IMMUNOGLOBULIN [Concomitant]
     Active Substance: THYMOCYTE IMMUNE GLOBULIN NOS
     Indication: T-CELL DEPLETION
     Dosage: 4 MILLIGRAM/KILOGRAM
     Route: 065
  4. SULFAMETHOXAZOLE 400 MG,TRIMETHOPRIM 80 MG [Concomitant]
     Indication: ANTIFUNGAL PROPHYLAXIS
     Dosage: 80?400 MG THRICE WEEKLY
     Route: 065
  5. MYCOPHENOLATE MOFETIL. [Suspect]
     Active Substance: MYCOPHENOLATE MOFETIL
     Indication: IMMUNOSUPPRESSANT DRUG THERAPY
     Dosage: 250 MILLIGRAM, BID
     Route: 065

REACTIONS (3)
  - Coccidioidomycosis [Recovering/Resolving]
  - Fungal infection [Recovering/Resolving]
  - Phaeohyphomycosis [Recovering/Resolving]
